FAERS Safety Report 6829117-9 (Version None)
Quarter: 2010Q3

REPORT INFORMATION
  Report Type: 
  Country: None (occurrence: None)
  Receive Date: 20100709
  Receipt Date: 20070504
  Transmission Date: 20110219
  Serious: No
  Sender: FDA-Public Use
  Company Number: US-PFIZER INC-2007017560

PATIENT
  Sex: Female
  Weight: 68.04 kg

DRUGS (4)
  1. CHANTIX [Suspect]
     Indication: SMOKING CESSATION THERAPY
     Dates: start: 20070301
  2. ANTIHYPERTENSIVES [Suspect]
     Indication: HYPERTENSION
  3. EVISTA [Concomitant]
  4. QUINAPRIL [Concomitant]

REACTIONS (2)
  - DRY SKIN [None]
  - FATIGUE [None]
